FAERS Safety Report 17168834 (Version 1)
Quarter: 2019Q4

REPORT INFORMATION
  Report Type: Report from Study
  Country: None (occurrence: US)
  Receive Date: 20191218
  Receipt Date: 20191218
  Transmission Date: 20200122
  Serious: Yes (Other)
  Sender: FDA-Public Use
  Company Number: US-ABBVIE-19K-163-3193915-00

PATIENT
  Sex: Male

DRUGS (1)
  1. HUMIRA [Suspect]
     Active Substance: ADALIMUMAB
     Indication: ANKYLOSING SPONDYLITIS
     Dosage: CF
     Route: 058

REACTIONS (7)
  - Aortic aneurysm [Unknown]
  - Blood cholesterol abnormal [Not Recovered/Not Resolved]
  - Musculoskeletal stiffness [Recovering/Resolving]
  - Blood pressure increased [Not Recovered/Not Resolved]
  - Temporomandibular joint syndrome [Unknown]
  - Pain [Recovering/Resolving]
  - Arteriosclerosis [Unknown]
